FAERS Safety Report 7588662-1 (Version None)
Quarter: 2011Q3

REPORT INFORMATION
  Report Type: 
  Country: None (occurrence: None)
  Receive Date: 20110705
  Receipt Date: 20110705
  Transmission Date: 20111222
  Serious: Yes (Death)
  Sender: FDA-Public Use
  Company Number: None

PATIENT
  Age: 39 Year
  Sex: Male
  Weight: 82.553 kg

DRUGS (1)
  1. TOPROL-XL [Suspect]
     Indication: HYPERTENSION
     Dosage: 1 PILL
     Route: 048
     Dates: start: 20100820, end: 20100829

REACTIONS (5)
  - VOMITING [None]
  - FATIGUE [None]
  - PERIPHERAL COLDNESS [None]
  - HYPERHIDROSIS [None]
  - SWOLLEN TONGUE [None]
